FAERS Safety Report 17659348 (Version 7)
Quarter: 2020Q3

REPORT INFORMATION
  Report Type: Report from Study
  Country: BR (occurrence: BR)
  Receive Date: 20200413
  Receipt Date: 20200922
  Transmission Date: 20201102
  Serious: Yes (Hospitalization)
  Sender: FDA-Public Use
  Company Number: BR-UCBSA-2020015019

PATIENT
  Age: 46 Year
  Sex: Female
  Weight: 68 kg

DRUGS (19)
  1. FOLIC ACID. [Concomitant]
     Active Substance: FOLIC ACID
     Indication: RHEUMATOID ARTHRITIS
  2. FOLIC ACID. [Concomitant]
     Active Substance: FOLIC ACID
     Indication: ANKYLOSING SPONDYLITIS
     Dosage: UNK
     Route: 048
  3. METOTREXATO [METHOTREXATE] [Concomitant]
     Active Substance: METHOTREXATE
     Indication: RHEUMATOID ARTHRITIS
  4. SELOZOK [Concomitant]
     Active Substance: METOPROLOL SUCCINATE
     Indication: CARDIAC DISORDER
     Dosage: 100 MILLIGRAM, UNK
     Route: 048
     Dates: start: 2018
  5. OMEPRAZOLE [OMEPRAZOLE SODIUM] [Concomitant]
     Active Substance: OMEPRAZOLE SODIUM
     Indication: PRODUCT USED FOR UNKNOWN INDICATION
     Dosage: 20 MILLIGRAM, UNK
     Route: 048
     Dates: start: 2018
  6. ROSUVASTATINA [ROSUVASTATIN] [Concomitant]
     Active Substance: ROSUVASTATIN
     Indication: CARDIAC DISORDER
     Dosage: 10 MILLIGRAM, UNK
     Route: 048
     Dates: start: 2018
  7. BENZETACIL [BENZATHINE BENZYLPENICILLIN] [Concomitant]
     Active Substance: PENICILLIN G BENZATHINE
     Indication: PAIN
  8. CERTOLIZUMAB PEGOL ASP [Suspect]
     Active Substance: CERTOLIZUMAB PEGOL
     Dosage: 400 MILLIGRAM, EV 4 WEEKS
     Route: 058
     Dates: start: 2020
  9. ESCITALOPRAM [Concomitant]
     Active Substance: ESCITALOPRAM OXALATE
     Indication: CARDIAC DISORDER
  10. CERTOLIZUMAB PEGOL ASP [Suspect]
     Active Substance: CERTOLIZUMAB PEGOL
     Dosage: 200 MILLIGRAM, EV 15 DAYS
     Route: 058
     Dates: start: 20200427, end: 2020
  11. SOMALGIN [Concomitant]
     Active Substance: ASPIRIN\DIHYDROXYALUMINUM AMINOACETATE ANHYDROUS\MAGNESIUM CARBONATE
     Indication: CARDIAC DISORDER
     Dosage: 325 MILLIGRAM, UNK
     Route: 048
     Dates: start: 2018
  12. CERTOLIZUMAB PEGOL ASP [Suspect]
     Active Substance: CERTOLIZUMAB PEGOL
     Indication: ANKYLOSING SPONDYLITIS
     Dosage: INITIAL DOSE
     Route: 058
     Dates: start: 2019, end: 201911
  13. PREDNISONA [Concomitant]
     Active Substance: PREDNISONE
     Indication: ANALGESIC THERAPY
     Dosage: 20 MILLIGRAM
     Route: 048
  14. ESCITALOPRAM [Concomitant]
     Active Substance: ESCITALOPRAM OXALATE
     Indication: ANXIETY
     Dosage: 10 MILLIGRAM, UNK
     Route: 048
     Dates: start: 2018
  15. METHOTREXATO [METHOTREXATE] [Concomitant]
     Indication: ANKYLOSING SPONDYLITIS
     Dosage: UNK, WEEKLY (QW)
     Route: 048
  16. LEVOFLOXACINO [LEVOFLOXACIN] [Concomitant]
     Active Substance: LEVOFLOXACIN
     Indication: ANALGESIC THERAPY
     Dosage: UNK
     Dates: start: 20200404
  17. CETOPROFENO [KETOPROFEN] [Concomitant]
     Indication: ANALGESIC THERAPY
     Dosage: UNK
     Dates: start: 20200404
  18. ARADOIS [Concomitant]
     Active Substance: LOSARTAN POTASSIUM
     Indication: CARDIAC DISORDER
     Dosage: 25 MILLIGRAM, UNK
     Route: 048
     Dates: start: 2018
  19. ALDACTONE [Concomitant]
     Active Substance: SPIRONOLACTONE
     Indication: CARDIAC DISORDER
     Dosage: 25 MILLIGRAM, UNK
     Route: 048
     Dates: start: 2018

REACTIONS (11)
  - Back pain [Not Recovered/Not Resolved]
  - Weight decreased [Not Recovered/Not Resolved]
  - Neuralgia [Not Recovered/Not Resolved]
  - Peripheral swelling [Not Recovered/Not Resolved]
  - Pain in extremity [Not Recovered/Not Resolved]
  - Head discomfort [Not Recovered/Not Resolved]
  - Fatigue [Not Recovered/Not Resolved]
  - Pain [Not Recovered/Not Resolved]
  - Insomnia [Not Recovered/Not Resolved]
  - Neck pain [Not Recovered/Not Resolved]
  - Dysstasia [Not Recovered/Not Resolved]

NARRATIVE: CASE EVENT DATE: 202003
